FAERS Safety Report 9750884 (Version 1)
Quarter: 2013Q4

REPORT INFORMATION
  Report Type: Spontaneous
  Country: FI (occurrence: JP)
  Receive Date: 20131212
  Receipt Date: 20131212
  Transmission Date: 20140711
  Serious: Yes (Disabling, Other)
  Sender: FDA-Public Use
  Company Number: FI-UPSHER-SMITH LABORATORIES, INC.-13004084

PATIENT
  Sex: 0

DRUGS (2)
  1. DIVIGEL [Suspect]
     Indication: MENOPAUSAL SYMPTOMS
     Dosage: 1 MG, QD
     Route: 062
  2. DUPHASTON [Concomitant]
     Dosage: 10 MG, QD
     Route: 048
     Dates: start: 20130422, end: 20130823

REACTIONS (13)
  - Self-medication [Unknown]
  - Thrombophlebitis [Not Recovered/Not Resolved]
  - Metrorrhagia [Not Recovered/Not Resolved]
  - Urticaria [Recovered/Resolved]
  - Movement disorder [Not Recovered/Not Resolved]
  - Gait disturbance [Not Recovered/Not Resolved]
  - Hypoaesthesia [Not Recovered/Not Resolved]
  - Insomnia [Not Recovered/Not Resolved]
  - Epistaxis [Not Recovered/Not Resolved]
  - Alopecia [Not Recovered/Not Resolved]
  - Tongue ulceration [Not Recovered/Not Resolved]
  - Burning sensation [Not Recovered/Not Resolved]
  - Emotional distress [Not Recovered/Not Resolved]
